FAERS Safety Report 9062392 (Version 2)
Quarter: 2013Q1

REPORT INFORMATION
  Report Type: Spontaneous
  Country: US (occurrence: US)
  Receive Date: 20130129
  Receipt Date: 20130227
  Transmission Date: 20140127
  Serious: Yes (Other)
  Sender: FDA-Public Use
  Company Number: PHEH2013US002329

PATIENT
  Sex: Female

DRUGS (2)
  1. GILENYA [Suspect]
     Indication: MULTIPLE SCLEROSIS
     Dosage: 0.5 MG, DAILY
     Route: 048
     Dates: start: 20110614, end: 20130220
  2. ANAESTHETICS [Concomitant]
     Indication: SURGERY
     Dosage: UNK UKN, UNK
     Dates: start: 20130221

REACTIONS (2)
  - Thyroid neoplasm [Not Recovered/Not Resolved]
  - White blood cell count decreased [Not Recovered/Not Resolved]
